FAERS Safety Report 22610106 (Version 1)
Quarter: 2023Q2

REPORT INFORMATION
  Report Type: Spontaneous
  Country: FR (occurrence: FR)
  Receive Date: 20230616
  Receipt Date: 20230616
  Transmission Date: 20230721
  Serious: Yes (Hospitalization)
  Sender: FDA-Public Use
  Company Number: None

PATIENT
  Age: 52 Year
  Sex: Male

DRUGS (3)
  1. ZYPADHERA [Suspect]
     Active Substance: OLANZAPINE PAMOATE
     Indication: Schizophrenia
     Dosage: 405 MG, UNKNOWN
     Route: 030
     Dates: start: 20230310
  2. ZYPADHERA [Suspect]
     Active Substance: OLANZAPINE PAMOATE
     Indication: Schizophrenia
     Dosage: 405 MG, UNKNOWN
     Route: 030
     Dates: start: 20230310
  3. ZYPADHERA [Suspect]
     Active Substance: OLANZAPINE PAMOATE
     Indication: Schizophrenia
     Dosage: 405 MG, UNKNOWN
     Route: 030
     Dates: start: 20230310

REACTIONS (6)
  - Disturbance in attention [Recovered/Resolved]
  - Muscle twitching [Recovered/Resolved]
  - Tachycardia [Recovering/Resolving]
  - Dysarthria [Recovered/Resolved]
  - Hypertension [Recovered/Resolved]
  - Post-injection delirium sedation syndrome [Recovered/Resolved]

NARRATIVE: CASE EVENT DATE: 20230601
